FAERS Safety Report 10221676 (Version 1)
Quarter: 2014Q2

REPORT INFORMATION
  Report Type: Spontaneous
  Country: US (occurrence: None)
  Receive Date: 20140605
  Receipt Date: 20140605
  Transmission Date: 20141212
  Serious: Yes (Hospitalization)
  Sender: FDA-Public Use
  Company Number: None

PATIENT
  Age: 62 Year
  Sex: Male
  Weight: 83.92 kg

DRUGS (7)
  1. IRINOTECAN [Suspect]
     Indication: SMALL CELL LUNG CANCER
     Dosage: DAY 1,8,15
     Route: 042
     Dates: start: 20140512
  2. CARFILZOMIB [Suspect]
     Indication: SMALL CELL LUNG CANCER
     Dosage: DAY 1,2,13,9,15,16
     Route: 042
     Dates: start: 20140512
  3. KLOR-CON [Concomitant]
  4. XANAX [Concomitant]
  5. PROCHLORPERAZINE [Concomitant]
  6. LOPERAMIDE [Concomitant]
  7. PYRIDOXINE [Concomitant]

REACTIONS (3)
  - Dehydration [None]
  - Diarrhoea [None]
  - Dizziness [None]
